FAERS Safety Report 8806204 (Version 1)
Quarter: 2012Q4

REPORT INFORMATION
  Report Type: Spontaneous
  Country: US (occurrence: None)
  Receive Date: 20120917
  Receipt Date: 20120917
  Transmission Date: 20130627
  Serious: Yes (Other)
  Sender: FDA-Public Use
  Company Number: 1036977

PATIENT
  Age: 29 Year
  Sex: Male
  Weight: 92.99 kg

DRUGS (3)
  1. CLEAR EYES REDNESS RELIEF [Suspect]
     Dosage: 2 drops in each eye every 4 hrs
  2. CLEAR EYES MAXIMUM REDNESS RELIEF [Suspect]
     Dosage: 2 drops in each eye every 4 hrs
  3. UNSPECIFIED DRUG [Suspect]
     Dosage: 2 drops in each eye every 4 hrs

REACTIONS (2)
  - Corneal degeneration [None]
  - Blindness unilateral [None]
